FAERS Safety Report 4907294-4 (Version None)
Quarter: 2006Q1

REPORT INFORMATION
  Report Type: 
  Country: None (occurrence: None)
  Receive Date: 20060208
  Receipt Date: 20060208
  Transmission Date: 20060701
  Serious: Yes (Hospitalization)
  Sender: FDA-Public Use
  Company Number: None

PATIENT
  Age: 55 Year
  Sex: Male
  Weight: 67.586 kg

DRUGS (5)
  1. PEGINTERFERON ALFA-2A [Suspect]
     Indication: HEPATITIS C
     Dates: start: 20050801, end: 20051027
  2. LORAZEPAM [Concomitant]
  3. IBUPROFEN [Concomitant]
  4. OMEPRAZOLE [Concomitant]
  5. SILDENAFIL [Concomitant]

REACTIONS (6)
  - CONDITION AGGRAVATED [None]
  - PAIN [None]
  - PANCYTOPENIA [None]
  - PYELONEPHRITIS [None]
  - RASH [None]
  - RHEUMATOID ARTHRITIS [None]
